FAERS Safety Report 9485980 (Version 1)
Quarter: 2013Q3

REPORT INFORMATION
  Report Type: Spontaneous
  Country: CO (occurrence: CO)
  Receive Date: 20130829
  Receipt Date: 20130829
  Transmission Date: 20140515
  Serious: Yes (Death, Life-Threatening, Hospitalization)
  Sender: FDA-Public Use
  Company Number: CO-MPIJNJ-2013JNJ000083

PATIENT
  Sex: 0

DRUGS (1)
  1. VELCADE [Suspect]
     Indication: PLASMA CELL MYELOMA
     Dosage: 2 MG, UNK
     Route: 065
     Dates: start: 20130517, end: 20130728

REACTIONS (5)
  - General physical health deterioration [Fatal]
  - Depression [Unknown]
  - Decubitus ulcer [Unknown]
  - Stomatitis [Unknown]
  - Diarrhoea [Unknown]
